FAERS Safety Report 7525265-9 (Version None)
Quarter: 2011Q2

REPORT INFORMATION
  Report Type: 
  Country: None (occurrence: None)
  Receive Date: 20110606
  Receipt Date: 20110527
  Transmission Date: 20111010
  Serious: Yes (Death)
  Sender: FDA-Public Use
  Company Number: TH-GENZYME-POMP-1001580

PATIENT
  Sex: Female
  Weight: 10 kg

DRUGS (4)
  1. CARVEDILOL [Concomitant]
     Indication: CARDIAC FAILURE CONGESTIVE
     Dosage: 0.2 MG/KG, Q12HR
     Dates: start: 20080222, end: 20110122
  2. MYOZYME [Suspect]
     Indication: GLYCOGEN STORAGE DISEASE TYPE II
     Dosage: 20 MG/KG, Q2W
     Route: 042
     Dates: start: 20080503
  3. ALDACTONE [Concomitant]
     Indication: CARDIAC FAILURE CONGESTIVE
     Dosage: 2 MG/KG, QD
     Dates: start: 20080211, end: 20110122
  4. LASIX [Concomitant]
     Indication: CARDIAC FAILURE CONGESTIVE
     Dosage: 2 MG/KG, QD
     Dates: start: 20080211, end: 20110122

REACTIONS (1)
  - CARDIO-RESPIRATORY ARREST [None]
